FAERS Safety Report 7404622 (Version 3)
Quarter: 2012Q4

REPORT INFORMATION
  Report Type: 
  Country: US (occurrence: None)
  Receive Date: 20100525
  Receipt Date: 20121003
  Transmission Date: 20130627
  Serious: Yes (Hospitalization, Other)
  Sender: FDA-Public Use
  Company Number: 2010AP000991

PATIENT
  Age: 19 Month
  Sex: Male
  Weight: 11.8 kg

DRUGS (4)
  1. ALBUTEROL SULFATE [Suspect]
     Indication: TACHYPNOEA
  2. ASPIRIN [Suspect]
  3. AMOXICILLIN [Concomitant]
  4. BACITRACIN [Concomitant]

REACTIONS (22)
  - Respiratory distress [None]
  - Toxicity to various agents [None]
  - Accidental exposure to product by child [None]
  - Viral upper respiratory tract infection [None]
  - Asthma [None]
  - Human bite [None]
  - Condition aggravated [None]
  - Off label use [None]
  - Cough [None]
  - Rhinorrhoea [None]
  - No therapeutic response [None]
  - Heart rate increased [None]
  - Wheezing [None]
  - Laboratory test interference [None]
  - Blood chloride increased [None]
  - Upper respiratory tract congestion [None]
  - Metabolic acidosis [None]
  - Rhinorrhoea [None]
  - Decreased activity [None]
  - Rhinorrhoea [None]
  - Blood pressure decreased [None]
  - Hypoprothrombinaemia [None]
